APPROVED DRUG PRODUCT: FLUPHENAZINE HYDROCHLORIDE
Active Ingredient: FLUPHENAZINE HYDROCHLORIDE
Strength: 10MG
Dosage Form/Route: TABLET;ORAL
Application: A215848 | Product #003
Applicant: TWI PHARMACEUTICALS INC
Approved: Apr 1, 2022 | RLD: No | RS: No | Type: DISCN